FAERS Safety Report 10696248 (Version 1)
Quarter: 2015Q1

REPORT INFORMATION
  Report Type: Spontaneous
  Country: US (occurrence: None)
  Receive Date: 20150106
  Receipt Date: 20150106
  Transmission Date: 20150721
  Serious: No
  Sender: FDA-Public Use
  Company Number: None

PATIENT
  Age: 3 Year
  Sex: Female
  Weight: 15.88 kg

DRUGS (1)
  1. SINGULAIR [Suspect]
     Active Substance: MONTELUKAST SODIUM
     Indication: ASTHMA
     Dosage: 1 PILL
     Route: 048
     Dates: start: 20141210, end: 20150104

REACTIONS (9)
  - Mood altered [None]
  - Hypersomnia [None]
  - Abdominal discomfort [None]
  - Fear [None]
  - Abnormal behaviour [None]
  - Hyperacusis [None]
  - Flatulence [None]
  - Lethargy [None]
  - Panic reaction [None]

NARRATIVE: CASE EVENT DATE: 20150105
